FAERS Safety Report 18550129 (Version 2)
Quarter: 2021Q2

REPORT INFORMATION
  Report Type: Spontaneous
  Country: UZ (occurrence: UZ)
  Receive Date: 20201126
  Receipt Date: 20210502
  Transmission Date: 20210717
  Serious: Yes (Other)
  Sender: FDA-Public Use
  Company Number: UZ-JNJFOC-20200704599

PATIENT
  Age: 27 Year
  Sex: Female
  Weight: 60 kg

DRUGS (6)
  1. CLOFAZIMINE [Suspect]
     Active Substance: CLOFAZIMINE
     Indication: PRODUCT USED FOR UNKNOWN INDICATION
     Dosage: MALE DOSING: 100 MG ORAL EVERY DAY
     Route: 065
     Dates: start: 20190606, end: 20191120
  2. PRETOMANID [Suspect]
     Active Substance: PRETOMANID
     Indication: PRODUCT USED FOR UNKNOWN INDICATION
     Dosage: MALE DOSING: 200 MG ORAL EVERY DAY
     Route: 065
     Dates: start: 20190606, end: 20191120
  3. LINEZOLID. [Suspect]
     Active Substance: LINEZOLID
     Indication: PRODUCT USED FOR UNKNOWN INDICATION
     Dosage: MALE DOSING : ORALLY 300MG OD FROM 26/SEP/2019 TO 20/NOV/2019, 600MG OD FROM 06/JUN/2020
     Route: 065
     Dates: start: 20190606, end: 20190925
  4. SIRTURO [Suspect]
     Active Substance: BEDAQUILINE FUMARATE
     Indication: PRODUCT USED FOR UNKNOWN INDICATION
     Dosage: MALE DOSING: ORAL, 400 MG, 1 Q 1 DAY FROM 06/JUN/2020 TO 19/JUN/2020, 200MG 3 TIMES A WK 20/JUN/2019
     Route: 065
     Dates: start: 20190606, end: 20190619
  5. SIRTURO [Suspect]
     Active Substance: BEDAQUILINE FUMARATE
     Route: 065
     Dates: start: 20190620, end: 20191120
  6. LINEZOLID. [Suspect]
     Active Substance: LINEZOLID
     Route: 065
     Dates: start: 20190926, end: 20191120

REACTIONS (2)
  - Paternal exposure during pregnancy [Recovered/Resolved]
  - Premature delivery [Recovered/Resolved]

NARRATIVE: CASE EVENT DATE: 2020
